FAERS Safety Report 7456124-8 (Version None)
Quarter: 2011Q2

REPORT INFORMATION
  Report Type: 
  Country: None (occurrence: None)
  Receive Date: 20110503
  Receipt Date: 20110419
  Transmission Date: 20111010
  Serious: No
  Sender: FDA-Public Use
  Company Number: IT-GENENTECH-316617

PATIENT
  Age: 25 Year
  Sex: Male

DRUGS (2)
  1. XOLAIR [Suspect]
     Indication: ASTHMA
     Route: 065
  2. XOLAIR [Suspect]
     Dosage: UNK
     Route: 065
     Dates: start: 20110330

REACTIONS (1)
  - TAENIASIS [None]
